FAERS Safety Report 10282006 (Version 2)
Quarter: 2014Q3

REPORT INFORMATION
  Report Type: Spontaneous
  Country: US (occurrence: US)
  Receive Date: 20140707
  Receipt Date: 20140905
  Transmission Date: 20150326
  Serious: Yes (Hospitalization)
  Sender: FDA-Public Use
  Company Number: US-GLAXOSMITHKLINE-A1076792A

PATIENT
  Age: 81 Year
  Sex: Female
  Weight: 80.9 kg

DRUGS (1)
  1. ADVAIR HFA [Suspect]
     Active Substance: FLUTICASONE PROPIONATE\SALMETEROL XINAFOATE
     Indication: PRODUCT USED FOR UNKNOWN INDICATION
     Route: 065
     Dates: start: 201107

REACTIONS (4)
  - Occupational therapy [Recovered/Resolved]
  - Supportive care [Recovered/Resolved]
  - Surgery [Recovered/Resolved]
  - Physiotherapy [Recovered/Resolved]

NARRATIVE: CASE EVENT DATE: 20140206
